FAERS Safety Report 20699821 (Version 4)
Quarter: 2022Q2

REPORT INFORMATION
  Report Type: Spontaneous
  Country: DE (occurrence: DE)
  Receive Date: 20220412
  Receipt Date: 20220513
  Transmission Date: 20220721
  Serious: Yes (Other)
  Sender: FDA-Public Use
  Company Number: DE-REDHILL BIOPHARMA-2022RDH00066

PATIENT
  Age: 63 Year
  Sex: Male

DRUGS (10)
  1. NALOXEGOL OXALATE [Suspect]
     Active Substance: NALOXEGOL OXALATE
     Indication: Product used for unknown indication
     Dosage: UNK
     Dates: end: 20220328
  2. NALOXEGOL OXALATE [Suspect]
     Active Substance: NALOXEGOL OXALATE
     Dosage: UNK
     Dates: start: 202203
  3. MORPHINE SULFATE [Suspect]
     Active Substance: MORPHINE SULFATE
     Indication: Neuralgia
     Dosage: 5 SINGLE DOSES (11 DROPS PER EPISODE)
     Route: 048
     Dates: start: 20220209, end: 20220209
  4. MORPHINE SULFATE [Suspect]
     Active Substance: MORPHINE SULFATE
     Dosage: 3 EPISODES WITH 11 DROPS EACH
     Route: 048
     Dates: start: 20220331, end: 20220331
  5. MORPHINE SULFATE [Suspect]
     Active Substance: MORPHINE SULFATE
     Dosage: UNKNOWN, 10 DROPS
     Route: 048
  6. MORPHINE SULFATE [Suspect]
     Active Substance: MORPHINE SULFATE
     Dosage: 4 SINGLE DOSES (USUALLY 11 DROPS PER EPISODE) DAILY
     Route: 048
     Dates: start: 202108
  7. CANNABIS SATIVA SUBSP. INDICA TOP [Suspect]
     Active Substance: CANNABIS SATIVA SUBSP. INDICA TOP
     Indication: Product used for unknown indication
     Dosage: UNK
  8. INSULIN NOS [Concomitant]
     Active Substance: INSULIN NOS
     Dosage: UNK
  9. AZATHIOPRINE [Concomitant]
     Active Substance: AZATHIOPRINE
     Dosage: UNK
  10. MAGNESIUM [Concomitant]
     Active Substance: MAGNESIUM
     Dosage: UNK

REACTIONS (35)
  - Polyneuropathy [Unknown]
  - Condition aggravated [Unknown]
  - Abdominal discomfort [Recovering/Resolving]
  - Depression [Not Recovered/Not Resolved]
  - Anxiety [Not Recovered/Not Resolved]
  - Panic attack [Not Recovered/Not Resolved]
  - Chills [Not Recovered/Not Resolved]
  - Rhinitis [Unknown]
  - Nasal congestion [Unknown]
  - Pain [Unknown]
  - Dry mouth [Unknown]
  - Insomnia [Unknown]
  - Microsleep [Unknown]
  - Food aversion [Unknown]
  - Palpitations [Recovered/Resolved]
  - Dyspnoea [Recovered/Resolved]
  - Constipation [Not Recovered/Not Resolved]
  - Myalgia [Not Recovered/Not Resolved]
  - Arthralgia [Not Recovered/Not Resolved]
  - Neuralgia [Unknown]
  - Toothache [Unknown]
  - Neck pain [Unknown]
  - Blood glucose decreased [Unknown]
  - Hyperhidrosis [Unknown]
  - Headache [Unknown]
  - Abdominal pain upper [Recovering/Resolving]
  - Flatulence [Unknown]
  - Pain [Recovered/Resolved]
  - Hot flush [Unknown]
  - Tremor [Unknown]
  - Asthenia [Unknown]
  - Psychiatric symptom [Unknown]
  - Drug intolerance [Unknown]
  - Drug ineffective [Unknown]
  - Medication error [Recovered/Resolved]

NARRATIVE: CASE EVENT DATE: 20220209
